FAERS Safety Report 8437765 (Version 7)
Quarter: 2016Q2

REPORT INFORMATION
  Report Type: Report from Study
  Country: CZ (occurrence: CZ)
  Receive Date: 20120302
  Receipt Date: 20160406
  Transmission Date: 20160815
  Serious: Yes (Other)
  Sender: FDA-Public Use
  Company Number: CZ-ACTELION-A-CH2012-60469

PATIENT
  Age: 29 Year
  Sex: Female
  Weight: 51 kg

DRUGS (9)
  1. ZAVESCA [Suspect]
     Active Substance: MIGLUSTAT
     Indication: NIEMANN-PICK DISEASE
     Dosage: 200 MG, TID
     Route: 048
     Dates: start: 20110915, end: 20120130
  2. ZAVESCA [Suspect]
     Active Substance: MIGLUSTAT
     Dosage: 100 MG, TID
     Route: 048
     Dates: start: 20130101
  3. THIAMIN [Concomitant]
     Active Substance: THIAMINE
  4. CYANOCOBALAMIN. [Concomitant]
     Active Substance: CYANOCOBALAMIN
     Dosage: UNK
     Dates: start: 200709
  5. MILGAMMA [Concomitant]
     Active Substance: VITAMIN B
     Indication: VITAMIN SUPPLEMENTATION
     Dosage: UNK
     Dates: start: 200709
  6. ZAVESCA [Suspect]
     Active Substance: MIGLUSTAT
     Dosage: 100 MG, TID
     Route: 048
     Dates: start: 20120131, end: 20120222
  7. ZAVESCA [Suspect]
     Active Substance: MIGLUSTAT
     Dosage: 100 MG, TID
     Route: 048
     Dates: start: 20120410, end: 20120501
  8. ZAVESCA [Suspect]
     Active Substance: MIGLUSTAT
     Dosage: 200 MG, TID
     Route: 048
     Dates: end: 20120810
  9. ASENTRA [Concomitant]
     Active Substance: SERTRALINE HYDROCHLORIDE
     Indication: DEPRESSION
     Dosage: UNK
     Dates: start: 200709

REACTIONS (16)
  - Niemann-Pick disease [Unknown]
  - Disorientation [Unknown]
  - Confusional state [Unknown]
  - Dysphagia [Unknown]
  - Fall [Unknown]
  - Motor dysfunction [Unknown]
  - Memory impairment [Unknown]
  - Cognitive disorder [Unknown]
  - Salivary hypersecretion [Unknown]
  - Apathy [Unknown]
  - Disease progression [Unknown]
  - Disturbance in attention [Unknown]
  - Lethargy [Unknown]
  - Cough [Unknown]
  - Speech disorder [Unknown]
  - Walking disability [Unknown]
